FAERS Safety Report 15267295 (Version 1)
Quarter: 2018Q3

REPORT INFORMATION
  Report Type: Spontaneous
  Country: HR (occurrence: HR)
  Receive Date: 20180810
  Receipt Date: 20180810
  Transmission Date: 20181010
  Serious: Yes (Hospitalization)
  Sender: FDA-Public Use
  Company Number: HR-AMGEN-HRVSP2018109427

PATIENT
  Age: 36 Year
  Sex: Female

DRUGS (5)
  1. EBETREXAT [Concomitant]
     Active Substance: METHOTREXATE SODIUM
     Dosage: 25 MG, QWK
     Route: 058
  2. DECORTIN [Concomitant]
     Active Substance: PREDNISONE
     Indication: RHEUMATOID ARTHRITIS
     Dosage: 15 MG, 1X/DAY
     Route: 048
     Dates: start: 20100102
  3. FOLACIN [Concomitant]
     Active Substance: FOLIC ACID
     Dosage: 5 MG, QWK
     Route: 048
  4. ENBREL [Suspect]
     Active Substance: ETANERCEPT
     Indication: RHEUMATOID ARTHRITIS
     Dosage: 50 MG WEEKLY
     Route: 058
     Dates: start: 20170208, end: 20171002
  5. CONTROLOC [Concomitant]
     Active Substance: PANTOPRAZOLE SODIUM
     Dosage: 20 MG, QD
     Route: 048

REACTIONS (2)
  - Drug effect incomplete [Recovering/Resolving]
  - Synovitis [Unknown]

NARRATIVE: CASE EVENT DATE: 201704
